FAERS Safety Report 6417734-X (Version None)
Quarter: 2009Q4

REPORT INFORMATION
  Report Type: 
  Country: None (occurrence: None)
  Receive Date: 20091027
  Receipt Date: 20091027
  Transmission Date: 20100525
  Serious: Yes (Hospitalization)
  Sender: FDA-Public Use
  Company Number: None

PATIENT
  Age: 65 Year
  Sex: Male
  Weight: 34.4734 kg

DRUGS (1)
  1. DICLOFENAC SODIUM [Suspect]
     Indication: OSTEOARTHRITIS

REACTIONS (5)
  - BLOOD PRESSURE INCREASED [None]
  - EROSIVE OESOPHAGITIS [None]
  - HAEMATEMESIS [None]
  - NAUSEA [None]
  - PRESYNCOPE [None]
